FAERS Safety Report 17297583 (Version 1)
Quarter: 2020Q1

REPORT INFORMATION
  Report Type: Spontaneous
  Country: CA (occurrence: CA)
  Receive Date: 20200122
  Receipt Date: 20200122
  Transmission Date: 20200409
  Serious: Yes (Death, Hospitalization, Other)
  Sender: FDA-Public Use
  Company Number: CA-TEVA-2020-CA-1172422

PATIENT
  Age: 58 Year
  Sex: Male

DRUGS (4)
  1. APO-CLARITHROMYCIN [Suspect]
     Active Substance: CLARITHROMYCIN
     Indication: PRODUCT USED FOR UNKNOWN INDICATION
     Route: 065
  2. ESBRIET [Suspect]
     Active Substance: PIRFENIDONE
     Indication: IDIOPATHIC PULMONARY FIBROSIS
     Dosage: 801 MILLIGRAM DAILY;
     Route: 048
  3. AMOXICILLIN/CLAVULANIC ACID [Suspect]
     Active Substance: AMOXICILLIN\CLAVULANIC ACID
     Indication: PRODUCT USED FOR UNKNOWN INDICATION
     Route: 065
  4. AMLODIPINE BESILATE [Concomitant]
     Active Substance: AMLODIPINE BESYLATE
     Indication: PRODUCT USED FOR UNKNOWN INDICATION
     Route: 065

REACTIONS (27)
  - Dyspnoea [Fatal]
  - Feeling cold [Fatal]
  - Irregular breathing [Fatal]
  - Loss of consciousness [Fatal]
  - Oropharyngeal pain [Fatal]
  - Pneumonia [Fatal]
  - Asthenia [Fatal]
  - Lung neoplasm [Fatal]
  - Nasopharyngitis [Fatal]
  - Road traffic accident [Fatal]
  - Chest pain [Fatal]
  - Pulmonary function test abnormal [Fatal]
  - Drug ineffective [Fatal]
  - Dry mouth [Fatal]
  - Malaise [Fatal]
  - Speech disorder [Fatal]
  - Anxiety [Fatal]
  - Blood cholesterol increased [Fatal]
  - Contusion [Fatal]
  - Appetite disorder [Fatal]
  - Death [Fatal]
  - Eating disorder [Fatal]
  - Fatigue [Fatal]
  - Inflammation [Fatal]
  - Nausea [Fatal]
  - Scratch [Fatal]
  - Weight decreased [Fatal]
